FAERS Safety Report 6435604-8 (Version None)
Quarter: 2009Q4

REPORT INFORMATION
  Report Type: 
  Country: None (occurrence: None)
  Receive Date: 20091111
  Receipt Date: 20091103
  Transmission Date: 20100525
  Serious: Yes (Other)
  Sender: FDA-Public Use
  Company Number: US-JNJCH-2009028810

PATIENT
  Age: 41 Year
  Sex: Male

DRUGS (2)
  1. ZYRTEC [Suspect]
     Indication: HYPERSENSITIVITY
     Dosage: TEXT:TWO 10MG TABLETS IN ONE DAY
     Route: 048
  2. LISINOPRIL [Concomitant]
     Indication: HYPERTENSION
     Dosage: TEXT:12.5 MG 1X DAY
     Route: 048

REACTIONS (3)
  - OEDEMA PERIPHERAL [None]
  - OVERDOSE [None]
  - SWELLING FACE [None]
